FAERS Safety Report 4273554-6 (Version None)
Quarter: 2004Q1

REPORT INFORMATION
  Report Type: 
  Country: None (occurrence: None)
  Receive Date: 20040114
  Receipt Date: 20040107
  Transmission Date: 20041129
  Serious: Yes (Death, Other)
  Sender: FDA-Public Use
  Company Number: USA-2003-0010537

PATIENT
  Age: 23 Year
  Sex: Male
  Weight: 59.9 kg

DRUGS (4)
  1. OXYCONTIN [Suspect]
  2. HYDROCODONE BITARTRATE [Suspect]
  3. ALPRAZOLAM [Suspect]
  4. MEPROBAMATE [Suspect]

REACTIONS (8)
  - ACCIDENTAL OVERDOSE [None]
  - BRAIN OEDEMA [None]
  - BRONCHOPNEUMONIA [None]
  - DRUG ABUSER [None]
  - MEDICATION ERROR [None]
  - MULTIPLE DRUG OVERDOSE [None]
  - PULMONARY CONGESTION [None]
  - PULMONARY OEDEMA [None]
